FAERS Safety Report 8234130-3 (Version None)
Quarter: 2012Q1

REPORT INFORMATION
  Report Type: 
  Country: None (occurrence: None)
  Receive Date: 20120323
  Receipt Date: 20120323
  Transmission Date: 20120608
  Serious: No
  Sender: FDA-Public Use
  Company Number: None

PATIENT
  Age: 83 Year
  Sex: Male
  Weight: 82.5 kg

DRUGS (1)
  1. RITUXIMAB [Suspect]
     Indication: CHRONIC LYMPHOCYTIC LEUKAEMIA
     Dosage: 750 MG ONCE IV
     Route: 042
     Dates: start: 20110523, end: 20110523

REACTIONS (6)
  - ANAPHYLACTIC REACTION [None]
  - INFUSION RELATED REACTION [None]
  - HYPOTENSION [None]
  - RENAL FAILURE [None]
  - CHEST PAIN [None]
  - VISION BLURRED [None]
